FAERS Safety Report 7058511-9 (Version None)
Quarter: 2010Q4

REPORT INFORMATION
  Report Type: 
  Country: None (occurrence: None)
  Receive Date: 20101022
  Receipt Date: 20101016
  Transmission Date: 20110411
  Serious: Yes (Hospitalization, Other)
  Sender: FDA-Public Use
  Company Number: US-WYE-H18212210

PATIENT
  Sex: Female
  Weight: 61.29 kg

DRUGS (2)
  1. PRISTIQ [Suspect]
     Indication: ANXIETY
     Dosage: 100 MG, FREQUENCY UNKNOWN
     Route: 048
     Dates: start: 20070101
  2. PRISTIQ [Suspect]
     Indication: DEPRESSION
     Dosage: 150 MG, FREQUENCY UNKNOWN, THEN WAS UNKNOWN DOSE
     Dates: end: 20100828

REACTIONS (4)
  - CHOLELITHIASIS [None]
  - HEPATIC ENZYME INCREASED [None]
  - MENORRHAGIA [None]
  - NAUSEA [None]
